FAERS Safety Report 7990927-6 (Version None)
Quarter: 2011Q4

REPORT INFORMATION
  Report Type: 
  Country: None (occurrence: None)
  Receive Date: 20111219
  Receipt Date: 20111212
  Transmission Date: 20120403
  Serious: Yes (Other)
  Sender: FDA-Public Use
  Company Number: US-AMGEN-USASP2011045936

PATIENT
  Age: 55 Year
  Sex: Female

DRUGS (1)
  1. ENBREL [Suspect]
     Indication: RHEUMATOID ARTHRITIS
     Dosage: 50 MG, QWK
     Dates: start: 19981119

REACTIONS (9)
  - LOCAL SWELLING [None]
  - RASH ERYTHEMATOUS [None]
  - CONSTIPATION [None]
  - WEIGHT DECREASED [None]
  - INTRAOCULAR PRESSURE INCREASED [None]
  - DRY EYE [None]
  - RECTAL HAEMORRHAGE [None]
  - HAEMORRHOIDS [None]
  - PAIN IN EXTREMITY [None]
